FAERS Safety Report 8898683 (Version 5)
Quarter: 2013Q1

REPORT INFORMATION
  Report Type: Spontaneous
  Country: US (occurrence: US)
  Receive Date: 20121109
  Receipt Date: 20130114
  Transmission Date: 20140127
  Serious: No
  Sender: FDA-Public Use
  Company Number: US-009507513-1211USA002410

PATIENT
  Sex: Male

DRUGS (7)
  1. VICTRELIS [Suspect]
     Indication: HEPATITIS C
     Dosage: 800 MG, TID
     Route: 048
     Dates: start: 201205
  2. VICTRELIS [Suspect]
     Dosage: 800 MG, TID
     Route: 048
  3. VICTRELIS [Suspect]
     Dosage: 800 MG, TID
     Route: 048
  4. VICTRELIS [Suspect]
     Dosage: 800 MG, TID
     Route: 048
  5. PEGASYS [Suspect]
     Dosage: UNK
     Dates: start: 201204
  6. RIBASPHERE [Suspect]
     Dosage: UNK
     Route: 048
     Dates: start: 201204
  7. AMBIEN [Concomitant]

REACTIONS (5)
  - Aggression [Not Recovered/Not Resolved]
  - Anger [Unknown]
  - Irritability [Unknown]
  - Fatigue [Unknown]
  - Asthenia [Unknown]
